FAERS Safety Report 23897160 (Version 1)
Quarter: 2024Q2

REPORT INFORMATION
  Report Type: Spontaneous
  Country: TW (occurrence: TW)
  Receive Date: 20240524
  Receipt Date: 20240524
  Transmission Date: 20240716
  Serious: Yes (Life-Threatening, Other)
  Sender: FDA-Public Use
  Company Number: TW-FreseniusKabi-FK202407887

PATIENT
  Sex: Male
  Weight: 66.7 kg

DRUGS (3)
  1. PROPOFOL [Suspect]
     Active Substance: PROPOFOL
     Indication: Induction of anaesthesia
     Dosage: ROUTE: INTRAVENOUS DRIP?DOSAGE UNKNOWN?200MG/20ML
     Dates: end: 20240511
  2. FENTANYL [Suspect]
     Active Substance: FENTANYL\FENTANYL CITRATE
     Indication: Induction of anaesthesia
     Dosage: FORM OF ADMIN: INJECTION?ROUTE: INTRAVENOUS DRIP?0.05MG/ML
     Dates: start: 20240511, end: 20240511
  3. NIMBEX [Suspect]
     Active Substance: CISATRACURIUM BESYLATE
     Indication: Induction of anaesthesia
     Dosage: ROUTE: INTRAVENOUS DRIP?2MG/ML
     Dates: start: 20240511, end: 20240511

REACTIONS (1)
  - Anaphylactic shock [Recovered/Resolved]

NARRATIVE: CASE EVENT DATE: 20240511
